FAERS Safety Report 16257603 (Version 1)
Quarter: 2019Q2

REPORT INFORMATION
  Report Type: Spontaneous
  Country: US (occurrence: US)
  Receive Date: 20190430
  Receipt Date: 20190430
  Transmission Date: 20190711
  Serious: Yes (Other)
  Sender: FDA-Public Use
  Company Number: US-MYLANLABS-2019M1039645

PATIENT
  Age: 60 Year
  Sex: Female

DRUGS (1)
  1. LEVETIRACETAM. [Suspect]
     Active Substance: LEVETIRACETAM
     Indication: SEIZURE
     Dosage: 500 MILLIGRAM, BID
     Route: 065
     Dates: start: 20190116

REACTIONS (4)
  - Seizure [Unknown]
  - Confusional state [Unknown]
  - Dizziness [Unknown]
  - Amnesia [Unknown]

NARRATIVE: CASE EVENT DATE: 2019
